FAERS Safety Report 5475284-1 (Version None)
Quarter: 2007Q3

REPORT INFORMATION
  Report Type: 
  Country: None (occurrence: None)
  Receive Date: 20070928
  Receipt Date: 20070925
  Transmission Date: 20080115
  Serious: Yes (Other)
  Sender: FDA-Public Use
  Company Number: 018834

PATIENT
  Age: 28 Year
  Sex: Female

DRUGS (4)
  1. ADDERALL (DEXTROAMPHETAMINE SACCHARATE, AMPHETAMINE ASPARTATE, DEXTROE [Suspect]
     Indication: ATTENTION DEFICIT/HYPERACTIVITY DISORDER
     Dosage: 20 MG, TID, ORAL
     Route: 048
     Dates: start: 20030101
  2. ENDOCET (OXYCODONE HYDROCHLORIDE, ACETAMINOPHEN) 10/650MG [Suspect]
     Indication: PAIN
     Dosage: 1 TABLET, ORAL
     Route: 048
     Dates: end: 20070820
  3. PERCOCET [Suspect]
     Indication: PAIN
     Dosage: 1  TABLET, TID, ORAL
     Route: 048
     Dates: start: 20050101, end: 20070801
  4. XANAX [Suspect]
     Indication: ANXIETY
     Dosage: 2 MG, TID, ORAL
     Route: 048

REACTIONS (6)
  - ABORTION SPONTANEOUS [None]
  - DRUG EXPOSURE DURING PREGNANCY [None]
  - PHARMACEUTICAL PRODUCT COMPLAINT [None]
  - PREGNANCY [None]
  - RASH GENERALISED [None]
  - RASH PRURITIC [None]
